FAERS Safety Report 4663365-1 (Version None)
Quarter: 2005Q2

REPORT INFORMATION
  Report Type: 
  Country: None (occurrence: None)
  Receive Date: 20050513
  Receipt Date: 20050503
  Transmission Date: 20051028
  Serious: Yes (Disabling, Other)
  Sender: FDA-Public Use
  Company Number: 2005070571

PATIENT

DRUGS (4)
  1. PREDNISONE [Suspect]
     Indication: ASTHMA EXACERBATION PROPHYLAXIS
     Dosage: 40 MG (40 MG, 1 IN 1 D), ORAL
     Route: 048
  2. SALBUTAMOL (SALBUTAMOL) [Suspect]
     Indication: ILL-DEFINED DISORDER
     Dosage: (AS NEEDED BASIS), INHALATION
     Route: 055
  3. DRUG, UNSPECIFIED (DRUG, UNSPECIFIED) [Suspect]
     Indication: ILL-DEFINED DISORDER
     Dosage: INHALATION
     Route: 055
  4. LAMOTRIGINE [Concomitant]

REACTIONS (3)
  - CONDITION AGGRAVATED [None]
  - IMPAIRED WORK ABILITY [None]
  - PETIT MAL EPILEPSY [None]
